FAERS Safety Report 18374855 (Version 3)
Quarter: 2020Q4

REPORT INFORMATION
  Report Type: Spontaneous
  Country: US (occurrence: US)
  Receive Date: 20201012
  Receipt Date: 20201012
  Transmission Date: 20210114
  Serious: Yes (Hospitalization, Other)
  Sender: FDA-Public Use
  Company Number: US-SPECGX-T202002018

PATIENT
  Age: 54 Year
  Sex: Male

DRUGS (2)
  1. METHADONE [Suspect]
     Active Substance: METHADONE HYDROCHLORIDE
     Dosage: 65 MILLIGRAM, QD (50 MG IN MORNING AND 15 MG AT BEDTIME)
     Route: 065
  2. METHADONE [Suspect]
     Active Substance: METHADONE HYDROCHLORIDE
     Indication: BACK PAIN
     Dosage: 65 MILLIGRAM, QD (50 MG IN MORNING AND 15 MG AT BEDTIME)
     Route: 065

REACTIONS (9)
  - Hypoglycaemia [Recovered/Resolved]
  - Dizziness [Unknown]
  - Gastroenteritis [Unknown]
  - Palpitations [Unknown]
  - Respiratory tract infection [Unknown]
  - Syncope [Unknown]
  - Hyperhidrosis [Unknown]
  - Asthenia [Unknown]
  - Confusional state [Unknown]
